FAERS Safety Report 18673220 (Version 1)
Quarter: 2020Q4

REPORT INFORMATION
  Report Type: Spontaneous
  Country: GB (occurrence: GB)
  Receive Date: 20201228
  Receipt Date: 20201228
  Transmission Date: 20210114
  Serious: Yes (Other)
  Sender: FDA-Public Use
  Company Number: GB-MYLANLABS-2020M1104040

PATIENT
  Age: 45 Year
  Sex: Female
  Weight: 65 kg

DRUGS (4)
  1. METRONIDAZOLE. [Suspect]
     Active Substance: METRONIDAZOLE
     Indication: PRODUCT USED FOR UNKNOWN INDICATION
     Dosage: 200 MILLIGRAM
     Dates: start: 20201123
  2. AMITRIPTYLINE HYDROCHLORIDE. [Concomitant]
     Active Substance: AMITRIPTYLINE HYDROCHLORIDE
     Dosage: UNK,TAKE 1 TO 2 EVERY EVENING 2 HOURS BEFORE
     Dates: start: 20200521
  3. UTROGESTAN [Concomitant]
     Active Substance: PROGESTERONE
     Dosage: 1 DOSAGE FORM,AS DIRECTED
     Dates: start: 20200521
  4. OESTROGEL [Concomitant]
     Active Substance: ESTRADIOL
     Dosage: 1 DOSAGE FORM, QD,APPLY
     Dates: start: 20200521

REACTIONS (1)
  - Muscle spasms [Recovered/Resolved]

NARRATIVE: CASE EVENT DATE: 20201123
